FAERS Safety Report 13978450 (Version 1)
Quarter: 2017Q3

REPORT INFORMATION
  Report Type: Spontaneous
  Country: US (occurrence: US)
  Receive Date: 20170915
  Receipt Date: 20170915
  Transmission Date: 20171128
  Serious: No
  Sender: FDA-Public Use
  Company Number: US-LPDUSPRD-20170910

PATIENT

DRUGS (1)
  1. INJECTAFER [Suspect]
     Active Substance: FERRIC CARBOXYMALTOSE
     Dosage: 750 MG/250(UNKNOWN SOLUTION)
     Route: 065

REACTIONS (3)
  - Blood pressure increased [Recovering/Resolving]
  - Nausea [Unknown]
  - Dizziness [Unknown]
